FAERS Safety Report 5900186-3 (Version None)
Quarter: 2008Q3

REPORT INFORMATION
  Report Type: 
  Country: None (occurrence: None)
  Receive Date: 20080924
  Receipt Date: 20080909
  Transmission Date: 20090109
  Serious: Yes (Hospitalization)
  Sender: FDA-Public Use
  Company Number: 2008S1016577

PATIENT
  Age: 56 Year
  Sex: Female

DRUGS (3)
  1. DIAZEPAM [Suspect]
     Indication: DRUG USE FOR UNKNOWN INDICATION
     Dosage: ; ORAL, 2 MG;
     Route: 048
  2. OLANZAPINE [Suspect]
     Indication: DRUG USE FOR UNKNOWN INDICATION
     Dosage: 600 MG; ; ORAL, 20 MG; DAILY;
     Route: 048
  3. PROPRANOLOL [Suspect]
     Indication: DRUG USE FOR UNKNOWN INDICATION
     Dosage: 960 MG; ; ORAL, 40 MG; TWICE A DAY;
     Route: 048

REACTIONS (3)
  - DEPRESSED LEVEL OF CONSCIOUSNESS [None]
  - DRUG TOXICITY [None]
  - INTENTIONAL OVERDOSE [None]
